FAERS Safety Report 5175871-4 (Version None)
Quarter: 2006Q4

REPORT INFORMATION
  Report Type: 
  Country: None (occurrence: None)
  Receive Date: 20061215
  Receipt Date: 20061102
  Transmission Date: 20070319
  Serious: Yes (Other)
  Sender: FDA-Public Use
  Company Number: FR-ROCHE-470498

PATIENT
  Age: 40 Year
  Sex: Male
  Weight: 63 kg

DRUGS (4)
  1. RIVOTRIL [Suspect]
     Indication: ANXIETY
     Route: 048
     Dates: start: 20060925, end: 20061030
  2. TOPALGIC [Concomitant]
     Indication: PAIN
     Route: 048
     Dates: start: 20060925, end: 20060930
  3. SKENAN LP [Concomitant]
     Indication: PAIN
     Route: 048
     Dates: start: 20060930
  4. ACTISKENAN [Concomitant]
     Indication: PAIN
     Dates: start: 20060930

REACTIONS (3)
  - CYTOLYTIC HEPATITIS [None]
  - HEPATITIS [None]
  - OESOPHAGEAL CARCINOMA [None]
